FAERS Safety Report 6173981-6 (Version None)
Quarter: 2009Q2

REPORT INFORMATION
  Report Type: 
  Country: None (occurrence: None)
  Receive Date: 20090430
  Receipt Date: 20090420
  Transmission Date: 20091009
  Serious: Yes (Hospitalization)
  Sender: FDA-Public Use
  Company Number: GB-PFIZER INC-2008039282

PATIENT

DRUGS (13)
  1. BLINDED *PLACEBO [Suspect]
     Indication: CARDIAC FAILURE
     Dosage: DAILY
     Route: 048
     Dates: start: 20071212
  2. BLINDED EPLERENONE [Suspect]
     Indication: CARDIAC FAILURE
     Dosage: DAILY
     Route: 048
     Dates: start: 20071212
  3. RAMIPRIL [Concomitant]
     Route: 048
     Dates: start: 20071023
  4. FUROSEMIDE [Concomitant]
     Route: 048
     Dates: start: 20071024
  5. DIGOXIN [Concomitant]
     Route: 048
     Dates: start: 20071019
  6. WARFARIN [Concomitant]
     Route: 048
     Dates: start: 20071022
  7. ACETAMINOPHEN W/ CODEINE [Concomitant]
     Dosage: UNK
     Route: 048
     Dates: start: 19960101
  8. THIAMINE HCL [Concomitant]
     Route: 048
     Dates: start: 20071024
  9. DIAZEPAM [Concomitant]
     Route: 048
  10. SALBUTAMOL [Concomitant]
     Route: 055
     Dates: start: 20040601
  11. SERETIDE [Concomitant]
     Route: 055
     Dates: start: 20040601
  12. TIOTROPIUM [Concomitant]
     Route: 055
     Dates: start: 20040601
  13. DILTIAZEM [Concomitant]
     Route: 048
     Dates: start: 20071024

REACTIONS (1)
  - TRANSIENT ISCHAEMIC ATTACK [None]
